FAERS Safety Report 16841364 (Version 3)
Quarter: 2019Q4

REPORT INFORMATION
  Report Type: Spontaneous
  Country: GB (occurrence: GB)
  Receive Date: 20190923
  Receipt Date: 20191024
  Transmission Date: 20200122
  Serious: Yes (Other)
  Sender: FDA-Public Use
  Company Number: PHHY2019GB218353

PATIENT
  Age: 38 Year
  Sex: Female

DRUGS (9)
  1. PREDNISOLONE. [Suspect]
     Active Substance: PREDNISOLONE
     Dosage: 1 %, QID
     Route: 065
  2. CHLORAMPHENICOL [Suspect]
     Active Substance: CHLORAMPHENICOL
     Indication: PRODUCT USED FOR UNKNOWN INDICATION
     Dosage: 1 %, QD (EVERY NIGHT) (OINTMENT)
     Route: 065
  3. DICLOFENAC [Suspect]
     Active Substance: DICLOFENAC
     Indication: PRODUCT USED FOR UNKNOWN INDICATION
     Dosage: UNK UNK, QID
     Route: 065
  4. LEVOFLOXACIN. [Suspect]
     Active Substance: LEVOFLOXACIN
     Dosage: 1 %, Q2H
     Route: 065
  5. CHLORAMPHENICOL [Suspect]
     Active Substance: CHLORAMPHENICOL
     Dosage: 1 %, QID
     Route: 065
  6. SODIUM HYALURONATE [Suspect]
     Active Substance: HYALURONATE SODIUM
     Indication: PRODUCT USED FOR UNKNOWN INDICATION
     Dosage: 0.2 %, Q2H
     Route: 065
  7. CYCLOPENTOLATE. [Suspect]
     Active Substance: CYCLOPENTOLATE
     Indication: PRODUCT USED FOR UNKNOWN INDICATION
     Dosage: 1 %, TID
     Route: 065
  8. LEVOFLOXACIN. [Suspect]
     Active Substance: LEVOFLOXACIN
     Indication: PRODUCT USED FOR UNKNOWN INDICATION
     Dosage: 0.5 %, Q2H
     Route: 065
  9. PREDNISOLONE. [Suspect]
     Active Substance: PREDNISOLONE
     Indication: PRODUCT USED FOR UNKNOWN INDICATION
     Dosage: 0.5 %, QID
     Route: 065

REACTIONS (1)
  - Keratopathy [Recovered/Resolved with Sequelae]
